FAERS Safety Report 9290096 (Version 1)
Quarter: 2013Q2

REPORT INFORMATION
  Report Type: Spontaneous
  Country: US (occurrence: None)
  Receive Date: 20130510
  Receipt Date: 20130510
  Transmission Date: 20140414
  Serious: Yes (Hospitalization)
  Sender: FDA-Public Use
  Company Number: 12064-1

PATIENT
  Age: 66 Year
  Sex: Female
  Weight: 73.48 kg

DRUGS (17)
  1. GSK2118436 [Suspect]
     Indication: PAPILLARY THYROID CANCER
     Route: 048
     Dates: start: 20121108, end: 20130430
  2. GSK1120212 [Suspect]
     Indication: PAPILLARY THYROID CANCER
     Route: 048
     Dates: start: 20121108, end: 20130430
  3. METFORMIN 500 MG [Concomitant]
  4. SPIRONOLACTONE [Concomitant]
  5. HYDROXYZINE [Concomitant]
  6. TRIAMINCINOLONE CREAM [Concomitant]
  7. LOSARTAN [Concomitant]
  8. ZOLEDRONIC ACID [Concomitant]
  9. LEVOTHYROXINE [Concomitant]
  10. FUROSEMIDE [Concomitant]
  11. CALCITRIOL [Concomitant]
  12. CARVEDILOL [Concomitant]
  13. POTASSIUM CITRATE [Concomitant]
  14. FERROUS SULFATE [Concomitant]
  15. ACETOMINPHEN [Concomitant]
  16. DULOXETINE [Concomitant]
  17. OMEPRAZOLE [Concomitant]

REACTIONS (2)
  - Cholecystitis acute [None]
  - Klebsiella test positive [None]
